FAERS Safety Report 26138459 (Version 1)
Quarter: 2025Q4

REPORT INFORMATION
  Report Type: Spontaneous
  Country: US (occurrence: US)
  Receive Date: 20251210
  Receipt Date: 20251210
  Transmission Date: 20260119
  Serious: No
  Sender: ALEXION PHARMACEUTICALS
  Company Number: US-AstraZeneca-CH-01010355AP

PATIENT
  Sex: Female

DRUGS (1)
  1. BREZTRI [Suspect]
     Active Substance: BUDESONIDE\FORMOTEROL\GLYCOPYRROLATE
     Route: 065

REACTIONS (5)
  - Intentional device misuse [Unknown]
  - Device delivery system issue [Unknown]
  - Nasopharyngitis [Unknown]
  - Dyspnoea [Unknown]
  - Product dose omission issue [Unknown]
